FAERS Safety Report 6184331-3 (Version None)
Quarter: 2009Q2

REPORT INFORMATION
  Report Type: 
  Country: None (occurrence: None)
  Receive Date: 20090508
  Receipt Date: 20090427
  Transmission Date: 20091009
  Serious: Yes (Hospitalization)
  Sender: FDA-Public Use
  Company Number: US-WATSON-2009-02982

PATIENT
  Sex: Female

DRUGS (3)
  1. FENTANYL-100 [Suspect]
     Indication: CANCER PAIN
     Dosage: 1 PATCH,Q3DAYS
     Route: 062
     Dates: start: 20090416, end: 20090424
  2. FENTANYL-100 [Suspect]
     Dosage: 1 PATCH, Q3DAYS
     Route: 062
     Dates: start: 20050101, end: 20090416
  3. VICODIN [Concomitant]
     Indication: BREAKTHROUGH PAIN
     Dosage: UNK
     Route: 065

REACTIONS (7)
  - APNOEA [None]
  - HYPERHIDROSIS [None]
  - INCOHERENT [None]
  - OVERDOSE [None]
  - PNEUMONIA [None]
  - POSTURE ABNORMAL [None]
  - RESPIRATORY FAILURE [None]
